FAERS Safety Report 25487605 (Version 1)
Quarter: 2025Q2

REPORT INFORMATION
  Report Type: Spontaneous
  Country: IT (occurrence: IT)
  Receive Date: 20250627
  Receipt Date: 20250627
  Transmission Date: 20250717
  Serious: Yes (Hospitalization, Other)
  Sender: DR REDDYS
  Company Number: None

PATIENT
  Age: 47 Year
  Sex: Female

DRUGS (4)
  1. BORTEZOMIB [Suspect]
     Active Substance: BORTEZOMIB
     Indication: Chronic lymphocytic leukaemia stage 2
  2. DOXORUBICIN [Suspect]
     Active Substance: DOXORUBICIN
     Indication: Chronic lymphocytic leukaemia stage 2
  3. FLUDARABINE [Suspect]
     Active Substance: FLUDARABINE PHOSPHATE
     Indication: Chronic lymphocytic leukaemia stage 2
  4. VENETOCLAX [Suspect]
     Active Substance: VENETOCLAX
     Indication: Chronic lymphocytic leukaemia stage 2
     Route: 048

REACTIONS (7)
  - Toxicity to various agents [Unknown]
  - Bronchiolitis [Unknown]
  - Viral infection [Unknown]
  - Drug ineffective [Unknown]
  - Chronic lymphocytic leukaemia [Unknown]
  - Septic shock [Unknown]
  - Anaemia [Unknown]
